FAERS Safety Report 6843030-2 (Version None)
Quarter: 2010Q3

REPORT INFORMATION
  Report Type: 
  Country: None (occurrence: None)
  Receive Date: 20100709
  Receipt Date: 20100629
  Transmission Date: 20110219
  Serious: Yes (Life-Threatening)
  Sender: FDA-Public Use
  Company Number: DKLU1062037

PATIENT
  Age: 53 Year
  Sex: Female
  Weight: 52 kg

DRUGS (5)
  1. COSMEGEN [Suspect]
     Indication: CHORIOCARCINOMA
     Dosage: 0.5 MG MILLIGRAM(S), 1 IN 2WK, INTRAVENOUS (NOT OTHERWISE SPECIFIED)
     Route: 042
     Dates: start: 20080630, end: 20080730
  2. METHOTREXATE [Suspect]
     Indication: CHORIOCARCINOMA
     Dosage: 420 MILLIGRAM(S), 1 IN 2 WK, INTRAVENOUS (NOT OTHERWISE SPECIFIED)
     Route: 042
     Dates: start: 20080630, end: 20090729
  3. LASTET (ETOPOSIDE) (INJECTION) [Suspect]
     Indication: CHORIOCARCINOMA
     Dosage: 140 MG MILLIGRAM(S), 1 IN 2 WK, INTRAVENOUS DRIP
     Route: 041
     Dates: start: 20080630, end: 20080730
  4. CYCLOPHOSPHAMIDE [Suspect]
     Indication: CHORIOCARCINOMA
     Dosage: 840 MG MILLIGRAM(S0, 1 IN 2 WK, INTRAVENOUS (NOT OTHERWISE SPECIFIED)
     Route: 042
     Dates: start: 20080707, end: 20080805
  5. ONCOVIN (VINCRISTINE SULFATE) (INJECTION) [Suspect]
     Indication: CHORIOCARCINOMA
     Dosage: 1.4 MG MILLIGRAM(S), 1 IN 2 WK, INTRAVENOUS (NOT OTHERWISE SPECIFIED)
     Route: 042
     Dates: start: 20080707, end: 20080805

REACTIONS (1)
  - PNEUMONIA [None]
